FAERS Safety Report 8327268-3 (Version None)
Quarter: 2012Q2

REPORT INFORMATION
  Report Type: 
  Country: None (occurrence: None)
  Receive Date: 20120502
  Receipt Date: 20120425
  Transmission Date: 20120825
  Serious: Yes (Other)
  Sender: FDA-Public Use
  Company Number: US-AMGEN-USASP2012000780

PATIENT
  Age: 61 Year
  Sex: Female

DRUGS (16)
  1. ZOCOR [Concomitant]
     Dosage: 1 MG, UNK
  2. BACLOFEN [Concomitant]
     Dosage: 1 MG, UNK
  3. ENBREL [Suspect]
     Dates: start: 20110601
  4. COZAAR [Concomitant]
     Dosage: 1 MG, UNK
  5. ASPIRIN [Concomitant]
     Dosage: 1 MG, UNK
  6. ALLOPURINOL [Concomitant]
     Dosage: 1 MG, UNK
  7. PROVENTIL HFA                      /00139501/ [Concomitant]
     Dosage: 4 MUG, UNK
  8. ENBREL [Suspect]
     Indication: PSORIATIC ARTHROPATHY
     Dosage: 50 MG, QWK
     Dates: start: 20110621
  9. HYDROCHLOROTHIAZIDE [Concomitant]
     Dosage: 1 MG, UNK
  10. ESTROGEL [Concomitant]
     Dosage: 1 MG, UNK
  11. SKELAXIN [Concomitant]
     Dosage: UNK MG, UNK
  12. GABAPENTIN [Concomitant]
     Dosage: 1 MG, UNK
  13. CENTRUM SILVER                     /01292501/ [Concomitant]
     Dosage: 1 UNK, UNK
  14. FOLIC ACID [Concomitant]
     Dosage: 1 MG, UNK
  15. LORATADINE [Concomitant]
     Dosage: 1 MG, UNK
  16. METHOTREXATE [Concomitant]
     Dosage: 1 MG, UNK

REACTIONS (6)
  - RHINORRHOEA [None]
  - SPINAL FUSION SURGERY [None]
  - INJECTION SITE PAIN [None]
  - SKIN LESION [None]
  - CELLULITIS [None]
  - INFECTION [None]
